FAERS Safety Report 5531364-3 (Version None)
Quarter: 2007Q4

REPORT INFORMATION
  Report Type: 
  Country: None (occurrence: None)
  Receive Date: 20071127
  Receipt Date: 20071112
  Transmission Date: 20080405
  Serious: Yes (Hospitalization)
  Sender: FDA-Public Use
  Company Number: DE-GDP-07403210

PATIENT
  Age: 65 Year
  Sex: Male

DRUGS (7)
  1. METVIX /FRA/ (METHYL AMINOLEVULINATE HYDROCHLORIDE) CREAM 16 %, CREAM [Suspect]
     Indication: ACTINIC KERATOSIS
     Dosage: 1 DF TOTAL TOPICAL, 1 DF TOTAL TOPICAL
     Route: 061
     Dates: start: 20071005, end: 20071005
  2. METVIX /FRA/ (METHYL AMINOLEVULINATE HYDROCHLORIDE) CREAM 16 %, CREAM [Suspect]
     Indication: ACTINIC KERATOSIS
     Dosage: 1 DF TOTAL TOPICAL, 1 DF TOTAL TOPICAL
     Route: 061
     Dates: start: 20071012, end: 20071012
  3. ATACAND [Concomitant]
  4. ARAVA [Concomitant]
  5. PRAVASTATIN [Concomitant]
  6. ASS ^ISIS^(ACETYLSALICYLIC ACID) [Concomitant]
  7. PREDNISONE [Concomitant]

REACTIONS (3)
  - DIPLOPIA [None]
  - PAIN OF SKIN [None]
  - STRABISMUS [None]
